FAERS Safety Report 4977013-4 (Version None)
Quarter: 2006Q2

REPORT INFORMATION
  Report Type: 
  Country: None (occurrence: None)
  Receive Date: 20060412
  Receipt Date: 20060406
  Transmission Date: 20061013
  Serious: Yes (Disabling, Other)
  Sender: FDA-Public Use
  Company Number: USA-2004-0016324

PATIENT
  Age: 53 Year
  Sex: Male
  Weight: 68.5 kg

DRUGS (9)
  1. OXYCONTIN [Suspect]
     Indication: PAIN
     Dosage: SEE IMAGE, ORAL
     Route: 048
  2. OXYCODONE HCL [Concomitant]
  3. MULTIVITAMINS (ASCORBIC ACID, ERGOCALCIFEROL, FOLIC ACID, NICOTINAMIDE [Concomitant]
  4. NORTRIPTYLINE HCL [Concomitant]
  5. FLEXERIL [Concomitant]
  6. FLOMAX (MORNIFLUMATE) [Concomitant]
  7. TMP-SMX (SULFAMETHOXAZOLE, TRIMETHOPRIM) [Concomitant]
  8. OMEPRAZOLE [Concomitant]
  9. NAPROSYN [Concomitant]

REACTIONS (51)
  - ANXIETY [None]
  - ARTHROPOD STING [None]
  - ASTHENIA [None]
  - BACK PAIN [None]
  - BENIGN PROSTATIC HYPERPLASIA [None]
  - CONSTIPATION [None]
  - DELUSIONAL DISORDER, UNSPECIFIED TYPE [None]
  - DEPRESSION [None]
  - DRUG ABUSER [None]
  - DRUG DEPENDENCE [None]
  - DRUG WITHDRAWAL SYNDROME [None]
  - DYSPEPSIA [None]
  - EPISTAXIS [None]
  - ERECTILE DYSFUNCTION [None]
  - FALL [None]
  - FATIGUE [None]
  - GLOSSODYNIA [None]
  - HEADACHE [None]
  - HYPERHIDROSIS [None]
  - HYPOACUSIS [None]
  - INADEQUATE ANALGESIA [None]
  - INCORRECT DOSE ADMINISTERED [None]
  - INGUINAL HERNIA [None]
  - INSOMNIA [None]
  - INTENTIONAL DRUG MISUSE [None]
  - MEMORY IMPAIRMENT [None]
  - MENTAL DISORDER [None]
  - MUSCLE SPASMS [None]
  - MUSCULOSKELETAL DISORDER [None]
  - NASAL DRYNESS [None]
  - NAUSEA [None]
  - NECK PAIN [None]
  - NEURALGIA [None]
  - NIGHT SWEATS [None]
  - NOCTURIA [None]
  - OBSESSIVE-COMPULSIVE DISORDER [None]
  - OCULAR HYPERAEMIA [None]
  - ORAL DISCOMFORT [None]
  - PAIN [None]
  - PAIN IN EXTREMITY [None]
  - PALPITATIONS [None]
  - PANIC ATTACK [None]
  - PARALYSIS [None]
  - PARANOIA [None]
  - POLLAKIURIA [None]
  - RASH [None]
  - SENSORY LOSS [None]
  - THERAPEUTIC RESPONSE UNEXPECTED WITH DRUG SUBSTITUTION [None]
  - TREMOR [None]
  - URINARY HESITATION [None]
  - URINE FLOW DECREASED [None]
